FAERS Safety Report 13867450 (Version 7)
Quarter: 2019Q1

REPORT INFORMATION
  Report Type: Report from Study
  Country: US (occurrence: US)
  Receive Date: 20170814
  Receipt Date: 20190128
  Transmission Date: 20190417
  Serious: Yes (Hospitalization)
  Sender: FDA-Public Use
  Company Number: US-ACTELION-A-US2016-142866

PATIENT
  Age: 65 Year
  Sex: Female
  Weight: 81.63 kg

DRUGS (21)
  1. MAGNESIUM CARBONATE [Concomitant]
     Active Substance: MAGNESIUM CARBONATE
     Dosage: UNK
     Dates: start: 201707
  2. UPTRAVI [Suspect]
     Active Substance: SELEXIPAG
     Dosage: 800 MCG, QD
     Route: 048
  3. METOPROLOL TARTRATE. [Concomitant]
     Active Substance: METOPROLOL TARTRATE
     Dosage: UNK
     Dates: start: 20181001
  4. UPTRAVI [Suspect]
     Active Substance: SELEXIPAG
     Dosage: 200 MCG, BID
     Route: 048
     Dates: start: 20160708
  5. REVATIO [Concomitant]
     Active Substance: SILDENAFIL CITRATE
  6. ELIQUIS [Concomitant]
     Active Substance: APIXABAN
     Dosage: UNK
  7. DOFETILIDE. [Concomitant]
     Active Substance: DOFETILIDE
     Dosage: UNK
     Dates: start: 20171014
  8. UPTRAVI [Suspect]
     Active Substance: SELEXIPAG
     Indication: PULMONARY HYPERTENSION
     Dosage: 1000 MCG, BID
     Route: 048
     Dates: start: 20170316
  9. UPTRAVI [Suspect]
     Active Substance: SELEXIPAG
     Dosage: 600 MCG, BID
     Route: 048
     Dates: start: 20160726
  10. SILDENAFIL. [Concomitant]
     Active Substance: SILDENAFIL
  11. SPIRONOLACTONE. [Concomitant]
     Active Substance: SPIRONOLACTONE
  12. UPTRAVI [Suspect]
     Active Substance: SELEXIPAG
     Dosage: 800 MCG, BID
     Route: 048
  13. PANTOPRAZOLE [Concomitant]
     Active Substance: PANTOPRAZOLE
     Dosage: UNK
     Dates: start: 20150105
  14. UPTRAVI [Suspect]
     Active Substance: SELEXIPAG
     Dosage: 1200 MCG, BID
     Route: 048
  15. VENTAVIS [Concomitant]
     Active Substance: ILOPROST
     Indication: PULMONARY ARTERIAL HYPERTENSION
  16. LORAZEPAM. [Concomitant]
     Active Substance: LORAZEPAM
     Dosage: UNK
     Dates: start: 20160125
  17. POTASSIUM CHLORIDE. [Concomitant]
     Active Substance: POTASSIUM CHLORIDE
     Dosage: UNK
     Dates: start: 201707
  18. OXYGEN. [Concomitant]
     Active Substance: OXYGEN
  19. APIXABAN [Concomitant]
     Active Substance: APIXABAN
     Dosage: UNK
     Dates: start: 20150609
  20. AMIODARONE [Suspect]
     Active Substance: AMIODARONE
     Indication: PRODUCT USED FOR UNKNOWN INDICATION
     Dosage: UNK
     Route: 065
     Dates: start: 2018
  21. FUROSEMIDE. [Concomitant]
     Active Substance: FUROSEMIDE

REACTIONS (34)
  - Dyspnoea exertional [Recovering/Resolving]
  - Pain in jaw [Recovering/Resolving]
  - Peripheral swelling [Recovering/Resolving]
  - Atrial fibrillation [Unknown]
  - Hepatic cirrhosis [Recovering/Resolving]
  - Fatigue [Recovering/Resolving]
  - Paraesthesia [Unknown]
  - Blood electrolytes decreased [Unknown]
  - Nasal congestion [Unknown]
  - Neck pain [Unknown]
  - Diarrhoea [Unknown]
  - Chills [Unknown]
  - Blood magnesium decreased [Unknown]
  - Pneumonia [Recovered/Resolved]
  - Toxicity to various agents [Recovered/Resolved]
  - Palpitations [Unknown]
  - Myalgia [Unknown]
  - Nodule [Recovering/Resolving]
  - Dyspnoea [Recovering/Resolving]
  - Blood potassium decreased [Unknown]
  - Tinnitus [Unknown]
  - Pollakiuria [Unknown]
  - Epistaxis [Unknown]
  - Nasopharyngitis [Unknown]
  - Product administration error [Unknown]
  - Anisomastia [Recovering/Resolving]
  - Oxygen consumption increased [Recovered/Resolved]
  - Hilar lymphadenopathy [Recovering/Resolving]
  - Cough [Recovered/Resolved]
  - Skin sensitisation [Unknown]
  - Dizziness [Unknown]
  - Headache [Unknown]
  - Malaise [Unknown]
  - Condition aggravated [Unknown]

NARRATIVE: CASE EVENT DATE: 2018
